FAERS Safety Report 9025307 (Version 2)
Quarter: 2013Q1

REPORT INFORMATION
  Report Type: Report from Study
  Country: AU (occurrence: AU)
  Receive Date: 20130122
  Receipt Date: 20130222
  Transmission Date: 20140127
  Serious: Yes (Disabling, Other)
  Sender: FDA-Public Use
  Company Number: AU-ALLERGAN-1217907US

PATIENT
  Age: 55 Year
  Sex: Male

DRUGS (6)
  1. AVASTIN [Suspect]
     Indication: DIABETIC RETINAL OEDEMA
     Dosage: 0.7 MG, SINGLE
     Route: 031
     Dates: start: 20120619, end: 20120619
  2. DEX [Suspect]
     Indication: DIABETIC RETINAL OEDEMA
     Dosage: 0.7 MG, SINGLE
     Route: 031
     Dates: start: 20120619, end: 20120619
  3. LANTUS [Concomitant]
     Indication: DIABETES MELLITUS
     Dosage: 45 UNKNOWN
  4. COVERSYL [Concomitant]
     Indication: HYPERTENSION
     Dosage: 10 MG, UNKNOWN
  5. LIPITOR [Concomitant]
     Indication: HYPERCHOLESTEROLAEMIA
     Dosage: 5 MG, UNKNOWN
  6. CARTIA [Concomitant]
     Indication: PRODUCT USED FOR UNKNOWN INDICATION

REACTIONS (4)
  - Visual acuity reduced [Recovering/Resolving]
  - Eye infection syphilitic [Recovered/Resolved]
  - Choroidal infarction [Recovering/Resolving]
  - Exfoliative rash [None]
